FAERS Safety Report 19910550 (Version 1)
Quarter: 2021Q4

REPORT INFORMATION
  Report Type: Spontaneous
  Country: US (occurrence: US)
  Receive Date: 20211004
  Receipt Date: 20211004
  Transmission Date: 20220303
  Serious: Yes (Hospitalization)
  Sender: FDA-Public Use
  Company Number: US-JNJFOC-20210938666

PATIENT
  Age: 20 Year
  Sex: Female
  Weight: 55 kg

DRUGS (2)
  1. TYLENOL EXTRA STRENGTH [Suspect]
     Active Substance: ACETAMINOPHEN
     Indication: Suicide attempt
     Dosage: 50000 MG ONCE AT 20:00
     Route: 048
     Dates: start: 20020115, end: 20020115
  2. NICODERM CQ [Concomitant]
     Active Substance: NICOTINE
     Indication: Product used for unknown indication
     Dosage: FOR 14 DAYS
     Route: 065
     Dates: end: 20020116

REACTIONS (7)
  - Suicide attempt [Recovered/Resolved]
  - Blood urea decreased [Recovered/Resolved]
  - Blood creatinine decreased [Recovered/Resolved]
  - Blood potassium decreased [Recovered/Resolved]
  - Calcium ionised decreased [Recovered/Resolved]
  - Acute hepatic failure [Recovered/Resolved]
  - Intentional overdose [Recovered/Resolved]

NARRATIVE: CASE EVENT DATE: 20020116
